FAERS Safety Report 20328224 (Version 2)
Quarter: 2022Q1

REPORT INFORMATION
  Report Type: Other
  Country: CA (occurrence: CA)
  Receive Date: 20220112
  Receipt Date: 20220118
  Transmission Date: 20220424
  Serious: Yes (Death, Other)
  Sender: FDA-Public Use
  Company Number: CA-TOLMAR, INC.-21CA032266

PATIENT
  Sex: Male

DRUGS (2)
  1. ELIGARD [Suspect]
     Active Substance: LEUPROLIDE ACETATE
     Indication: Product used for unknown indication
     Dosage: 22.5 MILLIGRAM, Q 3 MONTH
     Dates: start: 20211006
  2. ELIGARD [Suspect]
     Active Substance: LEUPROLIDE ACETATE
     Dosage: 22.5 MILLIGRAM, Q 3 MONTH

REACTIONS (7)
  - Death [Fatal]
  - Dehydration [Unknown]
  - Renal impairment [Unknown]
  - Asthenia [Unknown]
  - Hypotension [Unknown]
  - Blood glucose increased [Unknown]
  - Dysuria [Unknown]
